FAERS Safety Report 6531252-X (Version None)
Quarter: 2010Q1

REPORT INFORMATION
  Report Type: 
  Country: None (occurrence: None)
  Receive Date: 20100108
  Receipt Date: 20091230
  Transmission Date: 20100710
  Serious: Yes (Hospitalization)
  Sender: FDA-Public Use
  Company Number: DE-WYE-H12817210

PATIENT
  Age: 79 Year
  Sex: Female
  Weight: 85 kg

DRUGS (10)
  1. PANTOPRAZOLE [Interacting]
     Indication: GASTRITIS
     Route: 048
     Dates: start: 20090701
  2. AMPICILLIN AND SULBACTAM [Suspect]
     Indication: PNEUMONIA
     Route: 048
     Dates: start: 20091010, end: 20091017
  3. TORASEMIDE [Concomitant]
     Indication: CARDIAC FAILURE
     Route: 048
     Dates: start: 20090701, end: 20091113
  4. TORASEMIDE [Concomitant]
     Route: 048
     Dates: start: 20091114
  5. COPYRKAL [Concomitant]
     Indication: HEADACHE
     Dosage: UNSPECIFIED
     Route: 048
  6. DIGITOXIN INJ [Concomitant]
     Indication: ATRIAL FIBRILLATION
     Route: 048
     Dates: start: 20091001
  7. MCP ^BETAPHARM^ [Concomitant]
     Indication: NAUSEA
     Route: 048
     Dates: start: 20090701
  8. SYMBICORT [Concomitant]
     Indication: CHRONIC OBSTRUCTIVE PULMONARY DISEASE
     Route: 055
     Dates: start: 20090701
  9. TAVANIC [Interacting]
     Indication: URINARY TRACT INFECTION
     Route: 048
     Dates: start: 20090811, end: 20090819
  10. RAMIPRIL [Concomitant]
     Indication: CARDIAC FAILURE
     Route: 048
     Dates: start: 20091001

REACTIONS (2)
  - CLOSTRIDIUM DIFFICILE COLITIS [None]
  - DRUG INTERACTION [None]
